FAERS Safety Report 7942201-1 (Version None)
Quarter: 2011Q4

REPORT INFORMATION
  Report Type: 
  Country: None (occurrence: None)
  Receive Date: 20111128
  Receipt Date: 20111115
  Transmission Date: 20120403
  Serious: Yes (Other)
  Sender: FDA-Public Use
  Company Number: CA-ELI_LILLY_AND_COMPANY-CA201111004538

PATIENT
  Sex: Female

DRUGS (8)
  1. CLONAZEPAM [Concomitant]
  2. ZYPREXA [Suspect]
     Indication: SCHIZOAFFECTIVE DISORDER
     Dosage: 5 MG, UNK
  3. ZYPREXA [Suspect]
     Dosage: 7.5 MG, UNK
  4. TRAZODONE HCL [Concomitant]
  5. ZYPREXA [Suspect]
     Dosage: 10 MG, UNK
  6. LITHIUM [Concomitant]
  7. VALPROATE SODIUM [Concomitant]
  8. ZYPREXA [Suspect]
     Dosage: 2.5 MG, UNK
     Dates: start: 19980420

REACTIONS (15)
  - ANAEMIA [None]
  - CATARACT [None]
  - HYPERTENSION [None]
  - RASH PRURITIC [None]
  - AORTIC STENOSIS [None]
  - VISUAL ACUITY REDUCED [None]
  - HYPERLIPIDAEMIA [None]
  - RENAL FAILURE CHRONIC [None]
  - BREAST CANCER [None]
  - CARDIAC MURMUR [None]
  - BRONCHITIS CHRONIC [None]
  - DIABETIC NEPHROPATHY [None]
  - ALANINE AMINOTRANSFERASE DECREASED [None]
  - MITRAL VALVE STENOSIS [None]
  - DIABETES MELLITUS [None]
